FAERS Safety Report 4786511-8 (Version None)
Quarter: 2005Q3

REPORT INFORMATION
  Report Type: 
  Country: None (occurrence: None)
  Receive Date: 20050914
  Receipt Date: 20050209
  Transmission Date: 20060218
  Serious: Yes (Hospitalization, Other)
  Sender: FDA-Public Use
  Company Number: 163-20785-05020153

PATIENT
  Age: 87 Year
  Sex: Female

DRUGS (6)
  1. THALOMID [Suspect]
     Indication: MYELODYSPLASTIC SYNDROME
     Dosage: 100 MG, TWICE DAILY, ORAL
     Route: 048
     Dates: start: 20040908, end: 20041007
  2. ARANESP [Concomitant]
  3. IRON (FERROUS SULFATE) [Concomitant]
  4. ATACAND [Concomitant]
  5. LIPITOR [Concomitant]
  6. INDAPAMIDE [Concomitant]

REACTIONS (2)
  - ATRIAL FIBRILLATION [None]
  - CARDIAC FAILURE CONGESTIVE [None]
